FAERS Safety Report 8108304-6 (Version None)
Quarter: 2012Q1

REPORT INFORMATION
  Report Type: 
  Country: None (occurrence: None)
  Receive Date: 20120202
  Receipt Date: 20120123
  Transmission Date: 20120608
  Serious: Yes (Other)
  Sender: FDA-Public Use
  Company Number: PHEH2012US002285

PATIENT
  Sex: Male
  Weight: 96.145 kg

DRUGS (4)
  1. PEPCID [Concomitant]
  2. GLEEVEC [Suspect]
     Indication: CHRONIC MYELOID LEUKAEMIA
     Dosage: 400 MG, DAILY
     Route: 048
     Dates: start: 20100301
  3. WELLBUTRIN XL [Concomitant]
  4. NORVASC [Concomitant]

REACTIONS (18)
  - RENAL CYST [None]
  - OEDEMA PERIPHERAL [None]
  - BENIGN PROSTATIC HYPERPLASIA [None]
  - DEPRESSION [None]
  - RHINITIS ALLERGIC [None]
  - ANXIETY [None]
  - INSOMNIA [None]
  - JOINT SWELLING [None]
  - GASTROOESOPHAGEAL REFLUX DISEASE [None]
  - SKIN SENSITISATION [None]
  - JOINT RANGE OF MOTION DECREASED [None]
  - MUSCULOSKELETAL STIFFNESS [None]
  - HYPERTENSION [None]
  - ARTHRALGIA [None]
  - PERIORBITAL OEDEMA [None]
  - DIVERTICULUM [None]
  - LYME DISEASE [None]
  - MYALGIA [None]
